FAERS Safety Report 13363767 (Version 1)
Quarter: 2017Q1

REPORT INFORMATION
  Report Type: Report from Study
  Country: FR (occurrence: FR)
  Receive Date: 20170323
  Receipt Date: 20170323
  Transmission Date: 20170429
  Serious: Yes (Other)
  Sender: FDA-Public Use
  Company Number: FR-JNJFOC-20170322959

PATIENT
  Age: 49 Year
  Sex: Female
  Weight: 80 kg

DRUGS (1)
  1. SIMPONI [Suspect]
     Active Substance: GOLIMUMAB
     Indication: ANKYLOSING SPONDYLITIS
     Route: 058
     Dates: start: 20160313, end: 201604

REACTIONS (1)
  - Bartholin^s abscess [Recovered/Resolved]

NARRATIVE: CASE EVENT DATE: 20160402
